FAERS Safety Report 13168405 (Version 2)
Quarter: 2017Q1

REPORT INFORMATION
  Report Type: Spontaneous
  Country: US (occurrence: US)
  Receive Date: 20170131
  Receipt Date: 20170322
  Transmission Date: 20170428
  Serious: Yes (Hospitalization)
  Sender: FDA-Public Use
  Company Number: US-ASTRAZENECA-2017SE09818

PATIENT
  Age: 1008 Month
  Sex: Female
  Weight: 49.9 kg

DRUGS (13)
  1. TUDORZA PRESSAIR [Suspect]
     Active Substance: ACLIDINIUM BROMIDE
     Indication: LUNG DISORDER
     Dosage: 400.0UG UNKNOWN
     Route: 055
     Dates: start: 201504, end: 20150425
  2. TUDORZA PRESSAIR [Suspect]
     Active Substance: ACLIDINIUM BROMIDE
     Indication: LUNG DISORDER
     Dosage: 400.0UG UNKNOWN
     Route: 055
     Dates: start: 201702
  3. MULTAQ [Concomitant]
     Active Substance: DRONEDARONE
     Indication: CARDIAC DISORDER
     Route: 048
     Dates: start: 201701
  4. VITAMIN B COMPLEX [Concomitant]
     Active Substance: CYANOCOBALAMIN\DEXPANTHENOL\NIACINAMIDE\PYRIDOXINE HYDROCHLORIDE\RIBOFLAVIN 5^-PHOSPHATE SODIUM\THIAMINE HYDROCHLORIDE\VITAMIN B COMPLEX
     Dosage: DF DAILY
     Route: 048
     Dates: start: 2016
  5. ELIQUIS [Concomitant]
     Active Substance: APIXABAN
     Indication: ATRIAL FIBRILLATION
     Dates: start: 201701
  6. VITAMIN D3 [Concomitant]
     Active Substance: CHOLECALCIFEROL
     Route: 048
     Dates: start: 2015
  7. CITRACAL D3 [Concomitant]
     Active Substance: CALCIUM CITRATE\CHOLECALCIFEROL
     Dosage: DF  DAILY
     Route: 048
     Dates: start: 2015
  8. SYNTHROID [Concomitant]
     Active Substance: LEVOTHYROXINE SODIUM
     Indication: THYROID MASS
     Dates: start: 1998
  9. ZANTAC [Concomitant]
     Active Substance: RANITIDINE HYDROCHLORIDE
     Indication: GASTROOESOPHAGEAL REFLUX DISEASE
     Route: 048
     Dates: start: 2016
  10. ENSURE [Concomitant]
     Active Substance: AMINO ACIDS\DEXTROSE\ELECTROLYTES NOS\SOYBEAN OIL\VITAMINS
     Indication: ASTHENIA
     Route: 048
     Dates: start: 201701
  11. RESTASIS [Concomitant]
     Active Substance: CYCLOSPORINE
     Indication: DRY EYE
     Dates: start: 2008
  12. FLORASTOR PROBIOTIC [Concomitant]
     Route: 048
     Dates: start: 201601
  13. VALSARTAN. [Concomitant]
     Active Substance: VALSARTAN
     Indication: BLOOD PRESSURE ABNORMAL
     Route: 048
     Dates: start: 2016

REACTIONS (5)
  - Dyspnoea [Unknown]
  - Product use issue [Unknown]
  - Gastrooesophageal reflux disease [Unknown]
  - Cardiac disorder [Unknown]
  - Off label use [Unknown]

NARRATIVE: CASE EVENT DATE: 201504
